FAERS Safety Report 5086128-4 (Version None)
Quarter: 2006Q3

REPORT INFORMATION
  Report Type: 
  Country: None (occurrence: None)
  Receive Date: 20060818
  Receipt Date: 20060811
  Transmission Date: 20061208
  Serious: Yes (Other)
  Sender: FDA-Public Use
  Company Number: 2006068406

PATIENT
  Age: 53 Year
  Sex: Male
  Weight: 40 kg

DRUGS (17)
  1. VFEND [Suspect]
     Indication: ASPERGILLOSIS
     Dosage: 400 MG (2 IN 1 D0, INTRAVENOUS
     Route: 042
     Dates: start: 20060415, end: 20060524
  2. BACTRIM [Concomitant]
  3. TRAMADOL HCL [Concomitant]
  4. TRAMADOL HCL [Concomitant]
  5. ZOLPIDEM TARTRATE [Concomitant]
  6. OMEPRAZOLE [Concomitant]
  7. LOVENOX [Concomitant]
  8. AUGMENTIN '125' [Concomitant]
  9. XANAX [Concomitant]
  10. COMBIVIR [Concomitant]
  11. KALETRA [Concomitant]
  12. ZERIT [Concomitant]
  13. EPIVIR [Concomitant]
  14. MORPHINE SULFATE [Concomitant]
  15. MORPHINE SULFATE [Concomitant]
  16. WELLVONE (ATOVAQUONE) [Concomitant]
  17. CANCIDAS [Concomitant]

REACTIONS (2)
  - CHOLESTASIS [None]
  - THROMBOCYTOPENIA [None]
